FAERS Safety Report 8762054 (Version 3)
Quarter: 2012Q4

REPORT INFORMATION
  Report Type: 
  Country: US (occurrence: US)
  Receive Date: 20120830
  Receipt Date: 20121010
  Transmission Date: 20130627
  Serious: Yes (Other)
  Sender: FDA-Public Use
  Company Number: US-PFIZER INC-2012209186

PATIENT
  Age: 71 Year
  Sex: Female
  Weight: 84.63 kg

DRUGS (12)
  1. LIPITOR [Suspect]
     Dosage: 10 mg, UNK
     Dates: start: 20120423
  2. LIPITOR [Suspect]
     Dosage: UNK
     Dates: start: 2002
  3. PREMARIN [Suspect]
     Dosage: 0.625 mg/g, UNK
     Dates: start: 20120423
  4. ZOSTAVAX [Concomitant]
     Dosage: 19,400 unit, UNK
     Route: 058
     Dates: start: 20120723
  5. LOSARTAN [Concomitant]
     Dosage: 50 mg, UNK
     Dates: start: 2012
  6. LEVOTHYROXINE [Concomitant]
     Dosage: 150 ug, UNK
     Dates: start: 20120430
  7. ASPIRIN [Concomitant]
     Dosage: 81 mg, UNK
     Dates: start: 20120423
  8. REQUIP [Concomitant]
     Dosage: 0.25 mg, UNK
     Dates: start: 20120423
  9. TAMOXIFEN [Concomitant]
     Dosage: 20 mg, UNK
     Dates: start: 20120423
  10. CELEXA [Concomitant]
     Dosage: 20 mg, UNK
     Dates: start: 20120423
  11. OMEPRAZOLE [Concomitant]
     Dosage: 20 mg, UNK
     Dates: start: 20120423
  12. DETROL LA [Concomitant]
     Dosage: 4 mg, UNK
     Dates: start: 20120424

REACTIONS (12)
  - Hypothyroidism [Unknown]
  - Type V hyperlipidaemia [Unknown]
  - Major depression [Unknown]
  - Hypertension [Unknown]
  - Renal failure chronic [Unknown]
  - Extrapyramidal disorder [Unknown]
  - Constipation [Unknown]
  - Atrophic vulvovaginitis [Unknown]
  - Urge incontinence [Unknown]
  - Stress urinary incontinence [Unknown]
  - Insomnia [Unknown]
  - Carpal tunnel syndrome [Unknown]
